FAERS Safety Report 8440667-4 (Version None)
Quarter: 2012Q2

REPORT INFORMATION
  Report Type: 
  Country: None (occurrence: None)
  Receive Date: 20120615
  Receipt Date: 20120607
  Transmission Date: 20120825
  Serious: Yes (Other)
  Sender: FDA-Public Use
  Company Number: US-B.I. PHARMACEUTICALS,INC./RIDGEFIELD-2011-BP-17091BP

PATIENT
  Sex: Male
  Weight: 65.77 kg

DRUGS (2)
  1. MIRAPEX [Suspect]
     Indication: RESTLESS LEGS SYNDROME
     Dates: start: 20010409, end: 20110101
  2. MIRAPEX [Suspect]
     Indication: PERIODIC LIMB MOVEMENT DISORDER

REACTIONS (11)
  - SUICIDAL IDEATION [None]
  - SOMNOLENCE [None]
  - EMOTIONAL DISTRESS [None]
  - ACUTE MYOCARDIAL INFARCTION [None]
  - DEPRESSION [None]
  - PAIN [None]
  - COMPULSIVE SHOPPING [None]
  - STRESS [None]
  - COMPULSIVE HOARDING [None]
  - OBSESSIVE-COMPULSIVE DISORDER [None]
  - CONDITION AGGRAVATED [None]
